FAERS Safety Report 9254036 (Version 1)
Quarter: 2013Q2

REPORT INFORMATION
  Report Type: Spontaneous
  Country: US (occurrence: None)
  Receive Date: 20130419
  Receipt Date: 20130419
  Transmission Date: 20140414
  Serious: Yes (Hospitalization, Disabling)
  Sender: FDA-Public Use
  Company Number: 1672855

PATIENT
  Age: 4 Year
  Sex: Male

DRUGS (6)
  1. (CARBOPLATIN) [Suspect]
     Indication: NEUROBLASTOMA
  2. CYCLOPHOSPHAMIDE [Suspect]
     Indication: NEUROBLASTOMA
  3. ETOPOSIDE [Suspect]
     Indication: NEUROBLASTOMA
     Route: 041
  4. MELPHALAN [Suspect]
     Indication: NEUROBLASTOMA
  5. THIOTEPA [Suspect]
     Indication: NEUROBLASTOMA
  6. (PENTAMIDINE) [Concomitant]

REACTIONS (3)
  - Neutropenia [None]
  - Renal failure [None]
  - Muscular weakness [None]
